FAERS Safety Report 22942060 (Version 2)
Quarter: 2023Q4

REPORT INFORMATION
  Report Type: Report from Study
  Country: TR (occurrence: TR)
  Receive Date: 20230914
  Receipt Date: 20231003
  Transmission Date: 20240110
  Serious: Yes (Hospitalization)
  Sender: FDA-Public Use
  Company Number: TR-ABBVIE-5404089

PATIENT
  Sex: Male

DRUGS (5)
  1. CARBIDOPA\LEVODOPA [Suspect]
     Active Substance: CARBIDOPA\LEVODOPA
     Indication: Parkinson^s disease
     Dosage: MORNING DOSE (ML): 6.00 CONTINUOUS DOSE (ML): 4.00 EXTRA DOSE (ML): 2.00
     Route: 050
     Dates: start: 20130625
  2. CARBIDOPA\LEVODOPA [Suspect]
     Active Substance: CARBIDOPA\LEVODOPA
  3. BENSERAZIDE HYDROCHLORIDE\LEVODOPA [Concomitant]
     Active Substance: BENSERAZIDE HYDROCHLORIDE\LEVODOPA
     Indication: Parkinson^s disease
     Dosage: FORM STRENGTH: 125 MG
     Route: 048
     Dates: start: 20130625
  4. AMANTADINE SULFATE [Concomitant]
     Active Substance: AMANTADINE SULFATE
     Indication: Parkinson^s disease
     Dosage: FORM STRENGTH 100 MILLIGRAM
     Route: 048
     Dates: start: 20150401
  5. GYREX [Concomitant]
     Indication: Hallucination
     Dosage: FORM STRENGTH: 50 MG
     Route: 048
     Dates: start: 20221013

REACTIONS (2)
  - Gastric haemorrhage [Recovered/Resolved]
  - Vomiting [Recovered/Resolved]

NARRATIVE: CASE EVENT DATE: 20230911
